FAERS Safety Report 4964046-7 (Version None)
Quarter: 2006Q2

REPORT INFORMATION
  Report Type: 
  Country: None (occurrence: None)
  Receive Date: 20060405
  Receipt Date: 20030605
  Transmission Date: 20061013
  Serious: Yes (Hospitalization, Other)
  Sender: FDA-Public Use
  Company Number: US-MERCK-0306USA00842

PATIENT
  Age: 44 Year
  Sex: Female
  Weight: 61 kg

DRUGS (13)
  1. VIOXX [Suspect]
     Indication: BACK PAIN
     Route: 048
     Dates: start: 19990101, end: 20020101
  2. VIOXX [Suspect]
     Indication: ARTHRALGIA
     Route: 048
     Dates: start: 19990101, end: 20020101
  3. AMBIEN [Concomitant]
     Indication: DEPRESSION
     Route: 065
     Dates: start: 19990101
  4. AMBIEN [Concomitant]
     Indication: ANXIETY
     Route: 065
     Dates: start: 19990101
  5. PEPCID [Concomitant]
     Indication: GASTROOESOPHAGEAL REFLUX DISEASE
     Route: 048
  6. KEFLEX [Concomitant]
     Route: 065
  7. ZIAC [Concomitant]
     Indication: HYPERTENSION
     Route: 065
  8. DOXIDAN [Concomitant]
     Route: 065
  9. STADOL [Concomitant]
     Route: 065
  10. PROZAC [Concomitant]
     Indication: DEPRESSION
     Route: 065
     Dates: start: 19990101
  11. PROZAC [Concomitant]
     Indication: ANXIETY
     Route: 065
     Dates: start: 19990101
  12. ZOLOFT [Concomitant]
     Indication: DEPRESSION
     Route: 065
     Dates: start: 19990101
  13. ZOLOFT [Concomitant]
     Indication: ANXIETY
     Route: 065
     Dates: start: 19990101

REACTIONS (16)
  - ANXIETY [None]
  - ARTHRALGIA [None]
  - ARTHROPOD BITE [None]
  - CONSTIPATION [None]
  - DISTURBANCE IN ATTENTION [None]
  - LIMB INJURY [None]
  - MAJOR DEPRESSION [None]
  - MIGRAINE [None]
  - NAUSEA [None]
  - PAIN IN EXTREMITY [None]
  - PANIC DISORDER [None]
  - POLYTRAUMATISM [None]
  - SLEEP DISORDER [None]
  - SUICIDAL IDEATION [None]
  - SUPERFICIAL INJURY OF EYE [None]
  - SWELLING [None]
